FAERS Safety Report 21395296 (Version 1)
Quarter: 2022Q3

REPORT INFORMATION
  Report Type: Spontaneous
  Country: TW (occurrence: TW)
  Receive Date: 20220930
  Receipt Date: 20220930
  Transmission Date: 20221027
  Serious: Yes (Death, Life-Threatening, Hospitalization, Other)
  Sender: FDA-Public Use
  Company Number: TW-BoehringerIngelheim-2022-BI-194508

PATIENT
  Age: 54 Year
  Sex: Female

DRUGS (4)
  1. AFATINIB [Suspect]
     Active Substance: AFATINIB
     Indication: Malignant neoplasm progression
     Dates: start: 20220324
  2. AFATINIB [Suspect]
     Active Substance: AFATINIB
     Indication: EGFR gene mutation
  3. BRIGATINIB [Suspect]
     Active Substance: BRIGATINIB
     Indication: Malignant neoplasm progression
     Dates: start: 20220324
  4. BRIGATINIB [Suspect]
     Active Substance: BRIGATINIB
     Indication: EGFR gene mutation

REACTIONS (7)
  - Septic shock [Fatal]
  - Respiratory failure [Unknown]
  - Interstitial lung disease [Unknown]
  - Seizure [Unknown]
  - Metastases to central nervous system [Unknown]
  - Pneumonia [Unknown]
  - Off label use [Unknown]

NARRATIVE: CASE EVENT DATE: 20220101
